FAERS Safety Report 23692813 (Version 1)
Quarter: 2024Q2

REPORT INFORMATION
  Report Type: Spontaneous
  Country: CN (occurrence: CN)
  Receive Date: 20240401
  Receipt Date: 20240401
  Transmission Date: 20240716
  Serious: Yes (Other)
  Sender: FDA-Public Use
  Company Number: CN-SANOFI-01982045

PATIENT

DRUGS (1)
  1. FASTURTEC [Suspect]
     Active Substance: RASBURICASE
     Dosage: UNK

REACTIONS (7)
  - Lymphoma [Recovering/Resolving]
  - Renal impairment [Recovering/Resolving]
  - Anaphylactic shock [Recovered/Resolved]
  - Hyperuricaemia [Recovering/Resolving]
  - Hypercalcaemia [Recovering/Resolving]
  - Dialysis [Recovering/Resolving]
  - Fracture [Recovering/Resolving]
